FAERS Safety Report 19889541 (Version 1)
Quarter: 2021Q3

REPORT INFORMATION
  Report Type: Spontaneous
  Country: GB (occurrence: GB)
  Receive Date: 20210927
  Receipt Date: 20210927
  Transmission Date: 20211014
  Serious: Yes (Other)
  Sender: FDA-Public Use
  Company Number: GB-TEVA-2021-GB-1957159

PATIENT
  Age: 66 Year
  Sex: Female
  Weight: 63.04 kg

DRUGS (7)
  1. SODIUM CROMOGLICATE [Concomitant]
     Active Substance: CROMOLYN SODIUM
  2. CITALOPRAM [Concomitant]
     Active Substance: CITALOPRAM HYDROBROMIDE
     Dosage: 20MG
  3. IBANDRONIC ACID. [Suspect]
     Active Substance: IBANDRONIC ACID
     Indication: OSTEOPOROSIS
     Dosage: 150MG
     Route: 048
     Dates: start: 20210912
  4. CO?AMILOFRUSE [Concomitant]
     Active Substance: AMILORIDE\FUROSEMIDE
     Dosage: 5MG
  5. BISOPROLOL [Concomitant]
     Active Substance: BISOPROLOL
     Dosage: 2.5MG
  6. ASPIRIN. [Concomitant]
     Active Substance: ASPIRIN
     Dosage: 75MG
  7. ACIDEX [Concomitant]

REACTIONS (3)
  - Ear pain [Recovered/Resolved]
  - Musculoskeletal chest pain [Recovered/Resolved]
  - Joint stiffness [Recovered/Resolved]

NARRATIVE: CASE EVENT DATE: 20210912
